FAERS Safety Report 9280919 (Version 1)
Quarter: 2013Q2

REPORT INFORMATION
  Report Type: Spontaneous
  Country: GB (occurrence: GB)
  Receive Date: 20130509
  Receipt Date: 20130509
  Transmission Date: 20140414
  Serious: Yes (Hospitalization)
  Sender: FDA-Public Use
  Company Number: GB-PFIZER INC-2007336654

PATIENT
  Age: 7 Year
  Sex: Male

DRUGS (3)
  1. IBUPROFEN [Suspect]
     Indication: JUVENILE IDIOPATHIC ARTHRITIS
     Dosage: 10 MG 1/8 HOURS
  2. DICLOFENAC [Suspect]
     Indication: POSTOPERATIVE CARE
     Route: 054
  3. INDOMETACIN [Suspect]
     Indication: JUVENILE IDIOPATHIC ARTHRITIS
     Dosage: 25 MG 1/12 HOURS
     Route: 065

REACTIONS (3)
  - Renal failure acute [Recovered/Resolved]
  - Blood creatinine increased [Recovered/Resolved]
  - Blood urea increased [Recovered/Resolved]
